FAERS Safety Report 9676361 (Version 1)
Quarter: 2013Q4

REPORT INFORMATION
  Report Type: Report from Study
  Country: US (occurrence: US)
  Receive Date: 20131107
  Receipt Date: 20131107
  Transmission Date: 20140711
  Serious: Yes (Other)
  Sender: FDA-Public Use
  Company Number: US-US-EMD SERONO, INC.-7246439

PATIENT
  Sex: Male

DRUGS (1)
  1. REBIF [Suspect]
     Indication: PRODUCT USED FOR UNKNOWN INDICATION
     Dates: start: 20080627, end: 201310

REACTIONS (5)
  - Spinal osteoarthritis [Recovering/Resolving]
  - Intervertebral disc compression [Recovering/Resolving]
  - Back pain [Not Recovered/Not Resolved]
  - Dysarthria [Recovered/Resolved]
  - Liver function test abnormal [Unknown]
